FAERS Safety Report 17975032 (Version 2)
Quarter: 2020Q3

REPORT INFORMATION
  Report Type: Spontaneous
  Country: US (occurrence: US)
  Receive Date: 20200702
  Receipt Date: 20200720
  Transmission Date: 20201103
  Serious: No
  Sender: FDA-Public Use
  Company Number: US-SA-2020SA170522

PATIENT

DRUGS (1)
  1. CABLIVI [Suspect]
     Active Substance: CAPLACIZUMAB-YHDP
     Indication: THROMBOTIC MICROANGIOPATHY
     Dosage: 11 MG, QD
     Route: 058

REACTIONS (2)
  - Rash [Unknown]
  - Injection site pruritus [Unknown]
